FAERS Safety Report 15396508 (Version 1)
Quarter: 2018Q3

REPORT INFORMATION
  Report Type: Spontaneous
  Country: JP (occurrence: JP)
  Receive Date: 20180918
  Receipt Date: 20180918
  Transmission Date: 20181010
  Serious: Yes (Hospitalization)
  Sender: FDA-Public Use
  Company Number: JP-PFIZER INC-2018371911

PATIENT
  Age: 50 Year
  Sex: Male

DRUGS (3)
  1. PEMETREXED. [Concomitant]
     Active Substance: PEMETREXED
     Indication: LUNG ADENOCARCINOMA STAGE IV
     Dosage: UNK, CYCLIC (FIRST?LINE COMBINATION CHEMOTHERAPY, FOUR CYCLES)
  2. DOCETAXEL. [Suspect]
     Active Substance: DOCETAXEL
     Indication: LUNG ADENOCARCINOMA STAGE IV
     Dosage: UNK , CYCLIC (SECOND?LINE CHEMOTHERAPY)
  3. CISPLATIN. [Concomitant]
     Active Substance: CISPLATIN
     Indication: LUNG ADENOCARCINOMA STAGE IV
     Dosage: UNK, CYCLIC (FIRST?LINE COMBINATION CHEMOTHERAPY, FOUR CYCLES)

REACTIONS (1)
  - Vasculitis [Recovered/Resolved]
